FAERS Safety Report 9360844 (Version 1)
Quarter: 2013Q2

REPORT INFORMATION
  Report Type: Spontaneous
  Country: GB (occurrence: GB)
  Receive Date: 20130621
  Receipt Date: 20130621
  Transmission Date: 20140414
  Serious: Yes (Other)
  Sender: FDA-Public Use
  Company Number: GB-ELI_LILLY_AND_COMPANY-GB201304006553

PATIENT
  Age: 45 Year
  Sex: Male

DRUGS (5)
  1. STRATTERA [Suspect]
     Dosage: 20 MG, UNKNOWN
  2. STRATTERA [Suspect]
     Dosage: 40 MG, UNKNOWN
  3. STRATTERA [Suspect]
     Dosage: 20 MG, UNKNOWN
  4. STRATTERA [Suspect]
     Dosage: 40 MG, UNKNOWN
  5. STRATTERA [Suspect]
     Dosage: 1 DF, UNKNOWN

REACTIONS (3)
  - Suicidal ideation [Recovered/Resolved]
  - Intentional self-injury [Unknown]
  - Drug effect decreased [Recovered/Resolved]
